FAERS Safety Report 22084949 (Version 2)
Quarter: 2023Q1

REPORT INFORMATION
  Report Type: Spontaneous
  Country: PT (occurrence: PT)
  Receive Date: 20230310
  Receipt Date: 20230317
  Transmission Date: 20230417
  Serious: Yes (Other)
  Sender: FDA-Public Use
  Company Number: None

PATIENT
  Age: 58 Year
  Sex: Female
  Weight: 70 kg

DRUGS (6)
  1. IBRANCE [Suspect]
     Active Substance: PALBOCICLIB
     Indication: Breast cancer
     Dosage: 125 MG, CYCLIC: 1X/DAY FOR 21 DAYS AND REST FOR 7 DAYS (28/28 DAYS CYCLES)
     Route: 048
     Dates: start: 20220825, end: 20230124
  2. CALCIUM CARBONATE [Concomitant]
     Active Substance: CALCIUM CARBONATE
  3. FUROSEMIDE [Concomitant]
     Active Substance: FUROSEMIDE
  4. AMIODARONE [Concomitant]
     Active Substance: AMIODARONE
  5. ZOMETA [Concomitant]
     Active Substance: ZOLEDRONIC ACID
  6. ACENOCOUMAROL [Concomitant]
     Active Substance: ACENOCOUMAROL

REACTIONS (2)
  - Epistaxis [Recovered/Resolved]
  - Constipation [Recovered/Resolved]

NARRATIVE: CASE EVENT DATE: 20220924
